FAERS Safety Report 5670408-5 (Version None)
Quarter: 2008Q1

REPORT INFORMATION
  Report Type: 
  Country: None (occurrence: None)
  Receive Date: 20080318
  Receipt Date: 20080313
  Transmission Date: 20080703
  Serious: Yes (Hospitalization, Other)
  Sender: FDA-Public Use
  Company Number: DE-ABBOTT-08P-062-0434428-00

PATIENT
  Sex: Female
  Weight: 104 kg

DRUGS (3)
  1. HUMIRA [Suspect]
     Indication: PSORIATIC ARTHROPATHY
     Route: 058
     Dates: start: 20070115, end: 20071201
  2. MELOXICAM [Interacting]
     Indication: PSORIATIC ARTHROPATHY
     Route: 048
     Dates: start: 20050101, end: 20071201
  3. METHOTREXATE [Concomitant]
     Indication: PSORIATIC ARTHROPATHY
     Route: 058
     Dates: start: 20051201

REACTIONS (3)
  - HYPERSENSITIVITY [None]
  - OVERDOSE [None]
  - RESPIRATORY DISTRESS [None]
